FAERS Safety Report 13690264 (Version 1)
Quarter: 2017Q2

REPORT INFORMATION
  Report Type: Spontaneous
  Country: US (occurrence: US)
  Receive Date: 20170623
  Receipt Date: 20170623
  Transmission Date: 20170830
  Serious: Yes (Hospitalization)
  Sender: FDA-Public Use
  Company Number: None

PATIENT
  Age: 67 Year
  Sex: Female
  Weight: 56.9 kg

DRUGS (1)
  1. DECITABINE. [Suspect]
     Active Substance: DECITABINE
     Indication: ACUTE MYELOID LEUKAEMIA
     Route: 042

REACTIONS (6)
  - Anaemia [None]
  - Nausea [None]
  - Platelet count decreased [None]
  - Mouth haemorrhage [None]
  - Gingival bleeding [None]
  - Productive cough [None]

NARRATIVE: CASE EVENT DATE: 201706
